FAERS Safety Report 24211023 (Version 1)
Quarter: 2024Q3

REPORT INFORMATION
  Report Type: Spontaneous
  Country: US (occurrence: None)
  Receive Date: 20240813
  Receipt Date: 20240813
  Transmission Date: 20241017
  Serious: Yes (Hospitalization)
  Sender: Public
  Company Number: None

PATIENT
  Age: 74 Year
  Sex: Male
  Weight: 69.1 kg

DRUGS (1)
  1. SILDENAFIL [Suspect]
     Active Substance: SILDENAFIL
     Indication: Erectile dysfunction
     Dosage: FREQUENCY : DAILY;?
     Route: 048
     Dates: end: 20240804

REACTIONS (7)
  - Headache [None]
  - Cerebral venous sinus thrombosis [None]
  - Sigmoid sinus thrombosis [None]
  - Transverse sinus thrombosis [None]
  - Superior sagittal sinus thrombosis [None]
  - Jugular vein thrombosis [None]
  - Therapy cessation [None]

NARRATIVE: CASE EVENT DATE: 20240805
